FAERS Safety Report 6516618-6 (Version None)
Quarter: 2009Q4

REPORT INFORMATION
  Report Type: 
  Country: None (occurrence: None)
  Receive Date: 20091223
  Receipt Date: 20091218
  Transmission Date: 20100525
  Serious: Yes (Other)
  Sender: FDA-Public Use
  Company Number: GB-MERCK-0807GBR00021

PATIENT
  Sex: Female

DRUGS (5)
  1. TIMOPTIC [Suspect]
     Route: 047
     Dates: start: 20070101
  2. CARBOMER [Suspect]
     Indication: DRY EYE
     Route: 047
     Dates: start: 20070830, end: 20080325
  3. CARBOMER [Suspect]
     Route: 047
     Dates: start: 20080325
  4. DIAZEPAM [Concomitant]
     Route: 048
  5. POLYVINYL ALCOHOL [Concomitant]
     Route: 047
     Dates: start: 20070101

REACTIONS (3)
  - ANXIETY [None]
  - EYE MOVEMENT DISORDER [None]
  - VISUAL IMPAIRMENT [None]
